FAERS Safety Report 17743047 (Version 1)
Quarter: 2020Q2

REPORT INFORMATION
  Report Type: Spontaneous
  Country: US (occurrence: US)
  Receive Date: 20200505
  Receipt Date: 20200505
  Transmission Date: 20200714
  Serious: Yes (Other)
  Sender: FDA-Public Use
  Company Number: US-ABBVIE-20K-163-3387191-00

PATIENT
  Age: 57 Year
  Sex: Female
  Weight: 106.69 kg

DRUGS (7)
  1. HUMIRA [Suspect]
     Active Substance: ADALIMUMAB
     Indication: COLITIS ULCERATIVE
     Route: 058
  2. METHOTREXATE. [Concomitant]
     Active Substance: METHOTREXATE
     Indication: RHEUMATOID ARTHRITIS
  3. METHOTREXATE. [Concomitant]
     Active Substance: METHOTREXATE
     Indication: COLITIS ULCERATIVE
  4. HUMIRA [Suspect]
     Active Substance: ADALIMUMAB
     Indication: RHEUMATOID ARTHRITIS
     Route: 058
     Dates: start: 201903
  5. PREDNISONE. [Concomitant]
     Active Substance: PREDNISONE
     Indication: COLITIS ULCERATIVE
  6. PREDNISONE. [Concomitant]
     Active Substance: PREDNISONE
     Indication: RHEUMATOID ARTHRITIS
  7. FOLIC ACID. [Concomitant]
     Active Substance: FOLIC ACID
     Indication: PRODUCT USED FOR UNKNOWN INDICATION

REACTIONS (25)
  - Joint swelling [Unknown]
  - Injection site pain [Recovered/Resolved]
  - Arthralgia [Recovering/Resolving]
  - Gait disturbance [Recovered/Resolved]
  - Malaise [Unknown]
  - Expired product administered [Recovered/Resolved]
  - Device leakage [Unknown]
  - Weight increased [Not Recovered/Not Resolved]
  - Inflammation [Unknown]
  - Erythema [Unknown]
  - Pyrexia [Unknown]
  - Therapeutic response shortened [Unknown]
  - Grip strength decreased [Unknown]
  - Injection site bruising [Recovered/Resolved]
  - Pain in extremity [Recovered/Resolved]
  - Injection site bruising [Recovered/Resolved]
  - Influenza [Unknown]
  - Injection site pain [Recovered/Resolved]
  - Off label use [Recovered/Resolved]
  - Syringe issue [Unknown]
  - Peripheral swelling [Unknown]
  - Loss of consciousness [Recovered/Resolved]
  - Arthritis [Recovering/Resolving]
  - Anxiety [Unknown]
  - Pain [Recovered/Resolved]

NARRATIVE: CASE EVENT DATE: 2019
